FAERS Safety Report 6982248-5 (Version None)
Quarter: 2010Q3

REPORT INFORMATION
  Report Type: 
  Country: None (occurrence: None)
  Receive Date: 20100914
  Receipt Date: 20100103
  Transmission Date: 20110219
  Serious: No
  Sender: FDA-Public Use
  Company Number: US-PFIZER INC-2010000365

PATIENT
  Sex: Male
  Weight: 99.79 kg

DRUGS (6)
  1. LYRICA [Suspect]
     Indication: BACK PAIN
     Dosage: 75 MG, 2X/DAY
     Route: 048
     Dates: start: 20100103
  2. LYRICA [Suspect]
     Indication: INTERVERTEBRAL DISC PROTRUSION
  3. PERCOCET [Concomitant]
     Indication: BACK PAIN
     Dosage: 10 MG, UNK
     Route: 048
     Dates: end: 20091230
  4. LOPERAMIDE [Concomitant]
     Indication: GASTRIC DISORDER
  5. LOMEFLOXACIN HYDROCHLORIDE [Concomitant]
     Indication: GASTRIC DISORDER
  6. LEVOTHYROXINE [Concomitant]
     Indication: THYROID DISORDER

REACTIONS (1)
  - SOMNOLENCE [None]
